FAERS Safety Report 19275979 (Version 2)
Quarter: 2022Q1

REPORT INFORMATION
  Report Type: Report from Study
  Country: JP (occurrence: JP)
  Receive Date: 20210519
  Receipt Date: 20220220
  Transmission Date: 20220423
  Serious: Yes (Hospitalization, Other)
  Sender: FDA-Public Use
  Company Number: JP-ACTELION-A-CH2016-137003

PATIENT
  Age: 27 Year
  Sex: Male
  Weight: 54 kg

DRUGS (69)
  1. TRACLEER [Suspect]
     Active Substance: BOSENTAN
     Indication: Pulmonary arterial hypertension
     Dosage: 125 MG, BID
     Route: 048
     Dates: start: 20150418, end: 20150617
  2. OPSUMIT [Suspect]
     Active Substance: MACITENTAN
     Indication: Pulmonary arterial hypertension
     Dosage: 10 MG, QD
     Route: 048
     Dates: start: 20150618
  3. EPOPROSTENOL [Suspect]
     Active Substance: EPOPROSTENOL
     Indication: Pulmonary arterial hypertension
     Dosage: 0.52 NG/KG, PER MIN
     Route: 042
     Dates: end: 20170307
  4. EPOPROSTENOL [Suspect]
     Active Substance: EPOPROSTENOL
     Dosage: 0.26 NG/KG, PER MIN
     Route: 042
     Dates: start: 20150501
  5. EPOPROSTENOL [Suspect]
     Active Substance: EPOPROSTENOL
     Dosage: 0.79 NG/KG, PER MIN
     Route: 042
  6. EPOPROSTENOL [Suspect]
     Active Substance: EPOPROSTENOL
     Dosage: 6.35 NG/KG, PER MIN
     Route: 042
  7. EPOPROSTENOL [Suspect]
     Active Substance: EPOPROSTENOL
     Dosage: 30.5 NG/KG, PER MIN
     Route: 042
     Dates: end: 20170307
  8. EPOPROSTENOL [Suspect]
     Active Substance: EPOPROSTENOL
     Dosage: 28.9 NG/KG, PER MIN
     Route: 042
     Dates: start: 20170308, end: 20170321
  9. EPOPROSTENOL [Suspect]
     Active Substance: EPOPROSTENOL
     Dosage: 28.0 NG/KG, PER MIN
     Route: 042
     Dates: start: 20170322, end: 20170405
  10. EPOPROSTENOL [Suspect]
     Active Substance: EPOPROSTENOL
     Dosage: 26.5 NG/KG, PER MIN
     Route: 042
     Dates: start: 20170406
  11. EPOPROSTENOL [Suspect]
     Active Substance: EPOPROSTENOL
     Dosage: 29.25 NG/KG, PER MIN
     Route: 042
  12. EPOPROSTENOL [Suspect]
     Active Substance: EPOPROSTENOL
     Dosage: 11.11 NG/KG, PER MIN
     Route: 042
  13. EPOPROSTENOL [Suspect]
     Active Substance: EPOPROSTENOL
     Dosage: 13.76 NG/KG, PER MIN
     Route: 042
  14. EPOPROSTENOL [Suspect]
     Active Substance: EPOPROSTENOL
     Dosage: 21.43 NG/KG, PER MIN
     Route: 042
  15. EPOPROSTENOL [Suspect]
     Active Substance: EPOPROSTENOL
     Dosage: 27 NG/KG, PER MIN
     Route: 042
  16. EPOPROSTENOL [Suspect]
     Active Substance: EPOPROSTENOL
     Dosage: 30.6 NG/KG, PER MIN
     Route: 042
  17. EPOPROSTENOL [Suspect]
     Active Substance: EPOPROSTENOL
     Dosage: 29.8 NG/KG, PER MIN
     Route: 042
     Dates: start: 20170222
  18. EPOPROSTENOL [Suspect]
     Active Substance: EPOPROSTENOL
     Dosage: 29.25 NG/KG, PER MIN
     Route: 042
  19. EPOPROSTENOL [Suspect]
     Active Substance: EPOPROSTENOL
     Dosage: THE DOSE OF EPOPROSTENOL WAS DECREASED TO 24.3NG TO 26.87NG/KG/MIN
     Route: 042
     Dates: start: 20180925, end: 20190313
  20. EPOPROSTENOL [Suspect]
     Active Substance: EPOPROSTENOL
     Dosage: THE DOSE OF EPOPROSTENOL WAS DECREASED TO 11.5NG TO 22NG/KG/MIN.
     Route: 042
     Dates: start: 20190313
  21. EPOPROSTENOL [Suspect]
     Active Substance: EPOPROSTENOL
     Route: 042
     Dates: end: 20180924
  22. UPTRAVI [Suspect]
     Active Substance: SELEXIPAG
     Indication: Pulmonary arterial hypertension
     Dosage: 0.2 MG, QD
     Route: 048
     Dates: start: 20170111, end: 20170222
  23. UPTRAVI [Suspect]
     Active Substance: SELEXIPAG
     Dosage: 0.2 MG, BID
     Route: 048
     Dates: start: 20170223, end: 20170308
  24. UPTRAVI [Suspect]
     Active Substance: SELEXIPAG
     Dosage: 0.4 MG, BID
     Route: 048
     Dates: start: 20170309, end: 20170406
  25. UPTRAVI [Suspect]
     Active Substance: SELEXIPAG
     Dosage: 0.2 MG, BID
     Route: 048
     Dates: start: 20170323, end: 20170406
  26. UPTRAVI [Suspect]
     Active Substance: SELEXIPAG
     Dosage: 0.8 MG, BID
     Route: 048
     Dates: start: 20170407, end: 20170524
  27. UPTRAVI [Suspect]
     Active Substance: SELEXIPAG
     Dosage: 0.4 MG, BID
     Route: 048
     Dates: start: 20170525, end: 20181122
  28. UPTRAVI [Suspect]
     Active Substance: SELEXIPAG
     Dosage: THE DOSE OF UPTRAVI WAS INCREASED TO 0.4MG AND 0.6MG/DAY
     Route: 048
     Dates: start: 20181025
  29. UPTRAVI [Suspect]
     Active Substance: SELEXIPAG
     Dosage: THE DOSE OF UPTRAVI WAS GRADUALLY INCREASED AND REACHED AT 1.0MG X 2/DAY ON 22 FEB 2019
     Route: 048
     Dates: start: 20190222, end: 20190313
  30. UPTRAVI [Suspect]
     Active Substance: SELEXIPAG
     Dosage: THE DOSE OF UPTRAVI WAS INCREASED TO 1.2MG X 2/DAY.
     Route: 048
     Dates: start: 20190314, end: 20190410
  31. UPTRAVI [Suspect]
     Active Substance: SELEXIPAG
     Route: 048
     Dates: start: 20190411, end: 20190605
  32. UPTRAVI [Suspect]
     Active Substance: SELEXIPAG
     Route: 048
     Dates: start: 20190606
  33. UPTRAVI [Suspect]
     Active Substance: SELEXIPAG
     Route: 048
     Dates: start: 20190712
  34. UPTRAVI [Suspect]
     Active Substance: SELEXIPAG
     Route: 048
     Dates: start: 20190606, end: 20190711
  35. UPTRAVI [Suspect]
     Active Substance: SELEXIPAG
     Route: 048
     Dates: start: 20181025, end: 20181122
  36. UPTRAVI [Suspect]
     Active Substance: SELEXIPAG
     Route: 048
     Dates: start: 20181123, end: 20181225
  37. UPTRAVI [Suspect]
     Active Substance: SELEXIPAG
     Route: 048
     Dates: start: 20181226, end: 20190116
  38. UPTRAVI [Suspect]
     Active Substance: SELEXIPAG
     Route: 048
     Dates: start: 20190117, end: 20190221
  39. REBAMIPIDE [Suspect]
     Active Substance: REBAMIPIDE
     Indication: Abdominal discomfort
     Dosage: 100 MG, QD
     Route: 048
     Dates: start: 20150528, end: 20150604
  40. PREDONINE [Suspect]
     Active Substance: PREDNISOLONE
     Indication: Thyroiditis
     Dosage: 5 MG, BID
     Route: 048
     Dates: start: 20170510, end: 20170525
  41. PREDONINE [Suspect]
     Active Substance: PREDNISOLONE
     Dosage: 15 MG, OD
     Route: 048
     Dates: start: 20170526, end: 20170526
  42. PREDONINE [Suspect]
     Active Substance: PREDNISOLONE
     Dosage: 20 MG, OD
     Route: 048
     Dates: start: 20170527, end: 20170605
  43. PREDONINE [Suspect]
     Active Substance: PREDNISOLONE
     Dosage: 25 MG, OD
     Route: 048
     Dates: start: 20170606, end: 20170609
  44. PREDONINE [Suspect]
     Active Substance: PREDNISOLONE
     Dosage: 20 MG, OD
     Route: 048
     Dates: start: 20170610, end: 20170623
  45. PREDONINE [Suspect]
     Active Substance: PREDNISOLONE
     Dosage: 15 MG, OD
     Route: 048
     Dates: start: 20170624, end: 20170712
  46. PREDONINE [Suspect]
     Active Substance: PREDNISOLONE
     Dosage: 10 MG, OD
     Route: 048
     Dates: start: 20170906, end: 20170920
  47. PREDONINE [Suspect]
     Active Substance: PREDNISOLONE
     Dosage: 20 MG, OD
     Route: 048
     Dates: start: 20170921, end: 20180321
  48. PREDONINE [Suspect]
     Active Substance: PREDNISOLONE
     Dosage: 7.5 MG, OD
     Route: 048
     Dates: start: 20180322
  49. PREDONINE [Suspect]
     Active Substance: PREDNISOLONE
     Dosage: 5 MG, OD
     Route: 048
     Dates: start: 20170727
  50. PREDONINE [Suspect]
     Active Substance: PREDNISOLONE
     Dosage: 20 MG, OD
     Route: 048
     Dates: start: 201709
  51. PREDONINE [Suspect]
     Active Substance: PREDNISOLONE
     Dosage: 10-7.5 MG
     Route: 048
  52. PREDONINE [Suspect]
     Active Substance: PREDNISOLONE
     Route: 048
     Dates: end: 20190508
  53. GASTER [Suspect]
     Active Substance: FAMOTIDINE
     Indication: Abdominal discomfort
     Dosage: UNK
     Route: 048
     Dates: start: 20150516, end: 20150527
  54. ADEMPAS [Suspect]
     Active Substance: RIOCIGUAT
     Indication: Pulmonary arterial hypertension
     Dosage: 7.5 MG, QD
     Route: 048
     Dates: start: 20150427
  55. URAPIDIL [Concomitant]
     Active Substance: URAPIDIL
     Indication: Dysuria
     Dosage: UNK
     Route: 048
     Dates: start: 20170525, end: 20170525
  56. URAPIDIL [Concomitant]
     Active Substance: URAPIDIL
     Dosage: 30 MG, BID
     Route: 048
     Dates: start: 20170601
  57. OXYGEN [Concomitant]
     Active Substance: OXYGEN
     Indication: Product used for unknown indication
  58. CEFZON [Concomitant]
     Indication: Prophylaxis
     Dosage: 300 MG, OD
     Route: 048
     Dates: start: 20170501, end: 20170514
  59. CEFZON [Concomitant]
     Route: 048
     Dates: start: 20181226
  60. LASIX [Concomitant]
     Active Substance: FUROSEMIDE
     Indication: Right ventricular failure
     Dosage: 20 MG, OD
     Route: 048
     Dates: start: 20170407, end: 20170421
  61. LASIX [Concomitant]
     Active Substance: FUROSEMIDE
     Indication: Cardiac failure
  62. IMIDAFENACIN [Concomitant]
     Active Substance: IMIDAFENACIN
     Indication: Dysuria
     Dosage: UNK
     Route: 048
     Dates: end: 20170525
  63. IMIDAFENACIN [Concomitant]
     Active Substance: IMIDAFENACIN
     Dosage: 0.1 MG, BID
     Dates: start: 20170601
  64. CERNILTON N [Concomitant]
     Indication: Prostatitis
     Dosage: 6 DF, OD
     Route: 048
  65. LANSOPRAZOLE [Concomitant]
     Active Substance: LANSOPRAZOLE
     Indication: Prophylaxis
     Dosage: 15 MG, OD
     Route: 048
     Dates: start: 20170525
  66. LANSOPRAZOLE [Concomitant]
     Active Substance: LANSOPRAZOLE
     Dosage: 30 MG, OD
     Route: 048
  67. ARCRANE [Concomitant]
     Indication: Product used for unknown indication
     Dosage: 50 ML, OD
     Route: 048
     Dates: start: 20170606, end: 20170614
  68. BIFIDOBACTERIUM SPP. [Concomitant]
     Active Substance: BIFIDOBACTERIUM SPP.
     Indication: Product used for unknown indication
     Route: 048
  69. ZOLPIDEM TARTRATE [Concomitant]
     Active Substance: ZOLPIDEM TARTRATE
     Indication: Product used for unknown indication
     Route: 048

REACTIONS (29)
  - Device related infection [Recovered/Resolved]
  - Catheter site erythema [Recovered/Resolved]
  - Catheter site haemorrhage [Recovered/Resolved]
  - Catheter site haematoma [Recovered/Resolved]
  - Catheter management [Unknown]
  - Thyroiditis [Recovering/Resolving]
  - Hyperthyroidism [Recovered/Resolved]
  - Thyroxine free increased [Recovered/Resolved]
  - Blood thyroid stimulating hormone decreased [Recovered/Resolved]
  - Heart rate increased [Recovered/Resolved]
  - Drug-induced liver injury [Recovered/Resolved]
  - Alanine aminotransferase increased [Recovering/Resolving]
  - Aspartate aminotransferase increased [Recovered/Resolved]
  - Prostatitis [Recovered/Resolved]
  - Acne [Recovering/Resolving]
  - Rash [Recovering/Resolving]
  - Headache [Recovering/Resolving]
  - Blood pressure decreased [Recovered/Resolved]
  - Pain in jaw [Recovered/Resolved]
  - Nausea [Recovered/Resolved]
  - Tooth extraction [Recovered/Resolved]
  - Faeces soft [Recovered/Resolved]
  - Catheter site pain [Recovered/Resolved]
  - Catheter site warmth [Recovered/Resolved]
  - Seborrhoeic dermatitis [Recovered/Resolved]
  - Blood potassium decreased [Recovered/Resolved]
  - Abdominal discomfort [Recovering/Resolving]
  - Cyst [Recovered/Resolved]
  - Catheter site granuloma [Recovered/Resolved]

NARRATIVE: CASE EVENT DATE: 20150503
